FAERS Safety Report 7071229-1 (Version None)
Quarter: 2010Q4

REPORT INFORMATION
  Report Type: 
  Country: None (occurrence: None)
  Receive Date: 20101029
  Receipt Date: 20101019
  Transmission Date: 20110411
  Serious: Yes (Hospitalization)
  Sender: FDA-Public Use
  Company Number: GB-AMGEN-US343992

PATIENT

DRUGS (19)
  1. ETANERCEPT [Suspect]
     Indication: RHEUMATOID ARTHRITIS
     Dosage: 25 MG, 2 TIMES/WK
     Route: 058
     Dates: start: 20030615
  2. PREDNISOLONE [Concomitant]
     Dosage: UNK UNK, UNK
  3. PREDNISOLONE [Concomitant]
     Route: 048
  4. AMITRIPTYLINE HCL [Concomitant]
     Dosage: UNK UNK, UNK
  5. AMITRIPTYLINE HCL [Concomitant]
     Dosage: UNKNOWN
     Dates: end: 20080101
  6. PANTOPRAZOLE [Concomitant]
     Dosage: UNK UNK, UNK
  7. PANTOPRAZOLE [Concomitant]
     Dosage: UNKNOWN
  8. BENDROFLUMETHIAZIDE [Concomitant]
     Dosage: UNK UNK, UNK
  9. BENDROFLUMETHIAZIDE [Concomitant]
     Dosage: UNKNOWN
  10. NABUMETONE [Concomitant]
     Dosage: UNK UNK, UNK
  11. NABUMETONE [Concomitant]
     Dosage: UNKNOWN
  12. ARAVA [Concomitant]
     Dosage: UNK UNK, UNK
     Dates: start: 20000615, end: 20030115
  13. ARAVA [Concomitant]
     Dosage: UNKNOWN
     Dates: start: 20000615, end: 20030115
  14. ATENOLOL [Concomitant]
     Dosage: UNK UNK, UNK
  15. ATENOLOL [Concomitant]
     Dosage: UNKNOWN
  16. ADALAT [Concomitant]
     Dosage: UNKNOWN
  17. LANSOPRAZOLE [Concomitant]
     Dosage: UNKNOWN
     Dates: end: 20080101
  18. DIDRONEL [Concomitant]
     Dosage: UNKNOWN
  19. NEFOPAM [Concomitant]
     Dosage: UNKNOWN

REACTIONS (3)
  - LARGE INTESTINE PERFORATION [None]
  - PLEURAL EFFUSION [None]
  - RENAL FAILURE [None]
